FAERS Safety Report 7366506-0 (Version None)
Quarter: 2011Q1

REPORT INFORMATION
  Report Type: 
  Country: None (occurrence: None)
  Receive Date: 20110322
  Receipt Date: 20110124
  Transmission Date: 20110831
  Serious: Yes (Hospitalization, Other)
  Sender: FDA-Public Use
  Company Number: US-BAYER-2011-023423

PATIENT
  Sex: Female
  Weight: 49.887 kg

DRUGS (12)
  1. ALBUTEROL [Concomitant]
  2. ACCUTANE [Concomitant]
     Indication: ACNE
     Dosage: UNK
  3. NSAID'S [Concomitant]
  4. TAZORAC [Concomitant]
     Indication: ACNE
     Dosage: UNK
  5. YASMIN [Suspect]
     Indication: CONTRACEPTION
     Dosage: UNK
  6. OCELLA [Suspect]
     Indication: ACNE
  7. DIFFERIN [Concomitant]
     Indication: ACNE
     Dosage: UNK
  8. PROTON PUMP INHIBITORS [Concomitant]
     Indication: EPIGASTRIC DISCOMFORT
  9. EXCEDRIN [ACETYLSALICYLIC ACID,CAFFEINE,PARACETAMOL] [Concomitant]
  10. H2 BLOCKER [Concomitant]
     Indication: EPIGASTRIC DISCOMFORT
  11. YASMIN [Suspect]
     Indication: ACNE
  12. OCELLA [Suspect]
     Indication: CONTRACEPTION
     Dosage: UNK

REACTIONS (2)
  - ANXIETY [None]
  - PULMONARY EMBOLISM [None]
